FAERS Safety Report 13304871 (Version 1)
Quarter: 2017Q1

REPORT INFORMATION
  Report Type: Spontaneous
  Country: IN (occurrence: IN)
  Receive Date: 20170308
  Receipt Date: 20170308
  Transmission Date: 20170428
  Serious: Yes (Other)
  Sender: FDA-Public Use
  Company Number: IN-GLENMARK PHARMACEUTICALS-2017GMK026622

PATIENT

DRUGS (3)
  1. GABAPENTIN. [Suspect]
     Active Substance: GABAPENTIN
     Indication: WITHDRAWAL SYNDROME
     Dosage: 400 MG, QD
     Route: 065
  2. GABAPENTIN. [Suspect]
     Active Substance: GABAPENTIN
     Indication: DRUG DEPENDENCE
     Dosage: 2 G, QD
     Route: 065
  3. GABAPENTIN. [Suspect]
     Active Substance: GABAPENTIN
     Dosage: 10-12 G PER DAY
     Route: 065

REACTIONS (7)
  - Insomnia [Recovering/Resolving]
  - Drug dependence [Unknown]
  - Drug abuse [Unknown]
  - Irritability [Recovering/Resolving]
  - Depressed mood [Recovering/Resolving]
  - Agitation [Recovering/Resolving]
  - Withdrawal syndrome [Recovering/Resolving]
